FAERS Safety Report 5281624-9 (Version None)
Quarter: 2007Q1

REPORT INFORMATION
  Report Type: 
  Country: None (occurrence: None)
  Receive Date: 20070330
  Receipt Date: 20070301
  Transmission Date: 20070707
  Serious: Yes (Other)
  Sender: FDA-Public Use
  Company Number: 2006AC02371

PATIENT
  Sex: Female

DRUGS (2)
  1. SEROQUEL [Suspect]
     Indication: BIPOLAR DISORDER
     Route: 048
     Dates: start: 20060908
  2. SEROQUEL [Suspect]
     Dosage: SLOWLY INCREASED TO 50MG/DAY
     Route: 048
     Dates: start: 20060908

REACTIONS (3)
  - LACTATION DISORDER [None]
  - MENSTRUATION IRREGULAR [None]
  - SEDATION [None]
